FAERS Safety Report 11181387 (Version 1)
Quarter: 2015Q2

REPORT INFORMATION
  Report Type: Spontaneous
  Country: GB (occurrence: GB)
  Receive Date: 20150611
  Receipt Date: 20150611
  Transmission Date: 20150821
  Serious: Yes (Hospitalization, Other)
  Sender: FDA-Public Use
  Company Number: GB-TEVA-567404ACC

PATIENT
  Age: 42 Year
  Sex: Male

DRUGS (3)
  1. VENLAFAXINE [Suspect]
     Active Substance: VENLAFAXINE HYDROCHLORIDE
     Indication: BLOOD PRESSURE INCREASED
     Dosage: MORNING (HALF A 35MG TABLET)
     Dates: start: 2011
  2. VENLAFAXINE [Suspect]
     Active Substance: VENLAFAXINE HYDROCHLORIDE
     Indication: STRESS
     Dosage: 70 MILLIGRAM DAILY; MORNING AND EVENING
  3. VENLAFAXINE [Suspect]
     Active Substance: VENLAFAXINE HYDROCHLORIDE
     Indication: STRESS
     Dates: end: 201311

REACTIONS (11)
  - Loss of consciousness [Recovered/Resolved]
  - Generalised tonic-clonic seizure [Recovered/Resolved]
  - Hypertension [Recovered/Resolved]
  - Panic attack [Recovered/Resolved]
  - Hyperhidrosis [Recovered/Resolved]
  - Cardiomegaly [Unknown]
  - Libido decreased [Not Recovered/Not Resolved]
  - Depressed mood [Recovered/Resolved]
  - Apparent death [Unknown]
  - Suicidal ideation [Recovered/Resolved]
  - Sexual dysfunction [Not Recovered/Not Resolved]
